FAERS Safety Report 5148951-7 (Version None)
Quarter: 2006Q4

REPORT INFORMATION
  Report Type: 
  Country: None (occurrence: None)
  Receive Date: 20061108
  Receipt Date: 20061023
  Transmission Date: 20070319
  Serious: Yes (Other)
  Sender: FDA-Public Use
  Company Number: 2006PV023715

PATIENT
  Age: 54 Year
  Sex: Male
  Weight: 126.5536 kg

DRUGS (8)
  1. SYMLIN [Suspect]
     Indication: DIABETES MELLITUS
     Dosage: 60 MCG;BID;SC; 120 MCG;TID;SC; 60 MCG;TID;SC
     Route: 058
     Dates: start: 20050101, end: 20050101
  2. SYMLIN [Suspect]
     Indication: DIABETES MELLITUS
     Dosage: 60 MCG;BID;SC; 120 MCG;TID;SC; 60 MCG;TID;SC
     Route: 058
     Dates: start: 20050101, end: 20050101
  3. SYMLIN [Suspect]
     Indication: DIABETES MELLITUS
     Dosage: 60 MCG;BID;SC; 120 MCG;TID;SC; 60 MCG;TID;SC
     Route: 058
     Dates: start: 20050101
  4. NEURONTIN [Suspect]
     Indication: NEURALGIA
     Dosage: 800 MG;TID;PO
     Route: 048
     Dates: start: 20000101, end: 20060101
  5. HUMALOG [Concomitant]
  6. HUMULIN N [Concomitant]
  7. TOPAMAX [Suspect]
     Indication: NEURALGIA
     Dosage: 125 MG;QD;PO
     Route: 048
     Dates: start: 20060301, end: 20060101
  8. LYRICA [Suspect]
     Indication: NEURALGIA
     Dosage: 150 MG;QD;PO
     Route: 048
     Dates: start: 20060701, end: 20060705

REACTIONS (13)
  - ABDOMINAL DISTENSION [None]
  - BLINDNESS TRANSIENT [None]
  - BLOOD GLUCOSE DECREASED [None]
  - BLOOD GLUCOSE INCREASED [None]
  - DECREASED APPETITE [None]
  - DIZZINESS [None]
  - DYSPEPSIA [None]
  - DYSPHAGIA [None]
  - EYE HAEMORRHAGE [None]
  - NAUSEA [None]
  - RETINAL DISORDER [None]
  - SCAR [None]
  - WEIGHT DECREASED [None]
